FAERS Safety Report 10562043 (Version 2)
Quarter: 2014Q4

REPORT INFORMATION
  Report Type: Spontaneous
  Country: DK (occurrence: DK)
  Receive Date: 20141104
  Receipt Date: 20141104
  Transmission Date: 20150529
  Serious: Yes (Hospitalization, Disabling)
  Sender: FDA-Public Use
  Company Number: DK-009507513-2008-176946-NL

PATIENT
  Age: 27 Year
  Sex: Female
  Weight: 89.5 kg

DRUGS (2)
  1. ZYBAN [Concomitant]
     Active Substance: BUPROPION HYDROCHLORIDE
     Indication: SMOKING CESSATION THERAPY
     Dosage: DOSE TEXT: PROLONGED-RELEASE TABLET
     Route: 048
     Dates: start: 20060517, end: 20060817
  2. GRACIAL [Suspect]
     Active Substance: DESOGESTREL\ETHINYL ESTRADIOL
     Indication: CONTRACEPTION
     Dosage: CONTINUING: NO
     Route: 048
     Dates: start: 20001220, end: 20070131

REACTIONS (5)
  - Fatigue [Unknown]
  - Deep vein thrombosis [Recovered/Resolved with Sequelae]
  - Maternal exposure before pregnancy [Unknown]
  - Pain in extremity [Not Recovered/Not Resolved]
  - Burning sensation [Unknown]

NARRATIVE: CASE EVENT DATE: 200701
